FAERS Safety Report 8987242 (Version 2)
Quarter: 2013Q1

REPORT INFORMATION
  Report Type: Spontaneous
  Country: KR (occurrence: KR)
  Receive Date: 20121227
  Receipt Date: 20130121
  Transmission Date: 20140127
  Serious: Yes (Hospitalization)
  Sender: FDA-Public Use
  Company Number: KR-ELI_LILLY_AND_COMPANY-KR201212006621

PATIENT
  Sex: Female

DRUGS (3)
  1. HUMALOG 50% LISPRO, 50% NPL [Suspect]
     Indication: FULMINANT TYPE 1 DIABETES MELLITUS
     Dosage: 12 IU, EACH MORNING
     Route: 058
     Dates: start: 20120801, end: 20121217
  2. HUMALOG 50% LISPRO, 50% NPL [Suspect]
     Dosage: 10 U, QD
     Route: 058
     Dates: start: 20120801, end: 20121217
  3. HUMALOG 50% LISPRO, 50% NPL [Suspect]
     Dosage: 8 U, EACH EVENING
     Route: 058
     Dates: start: 20120801, end: 20121217

REACTIONS (3)
  - Blood glucose increased [Not Recovered/Not Resolved]
  - General physical health deterioration [Recovering/Resolving]
  - Headache [Recovering/Resolving]
